FAERS Safety Report 21658293 (Version 1)
Quarter: 2022Q4

REPORT INFORMATION
  Report Type: Spontaneous
  Country: US (occurrence: US)
  Receive Date: 20221129
  Receipt Date: 20221129
  Transmission Date: 20230113
  Serious: No
  Sender: FDA-Public Use
  Company Number: US-009507513-2211USA008451

PATIENT
  Age: 42 Year
  Sex: Female

DRUGS (1)
  1. NOXAFIL [Suspect]
     Active Substance: POSACONAZOLE
     Indication: Haemophagocytic lymphohistiocytosis
     Route: 048

REACTIONS (2)
  - Gastrointestinal disorder [Unknown]
  - Product use in unapproved indication [Unknown]
